FAERS Safety Report 5409634-9 (Version None)
Quarter: 2007Q3

REPORT INFORMATION
  Report Type: 
  Country: None (occurrence: None)
  Receive Date: 20070807
  Receipt Date: 20070807
  Transmission Date: 20080115
  Serious: Yes (Hospitalization)
  Sender: FDA-Public Use
  Company Number: None

PATIENT
  Age: 79 Year
  Sex: Male
  Weight: 102 kg

DRUGS (7)
  1. DEFINITY [Suspect]
     Indication: ECHOCARDIOGRAM
     Dates: start: 20070726, end: 20070726
  2. AMBIEN [Concomitant]
  3. COMPAZINE [Concomitant]
  4. METOPROLOL SUCCINATE [Concomitant]
  5. DIGOXIN [Concomitant]
  6. ASPIRIN [Concomitant]
  7. ACETAMINOPHEN [Concomitant]

REACTIONS (15)
  - ARTHRALGIA [None]
  - BACK PAIN [None]
  - BLOOD PRESSURE SYSTOLIC INCREASED [None]
  - BODY TEMPERATURE INCREASED [None]
  - CHILLS [None]
  - CYANOSIS [None]
  - DEPRESSED LEVEL OF CONSCIOUSNESS [None]
  - DYSPNOEA [None]
  - GRUNTING [None]
  - HEART RATE INCREASED [None]
  - LIVEDO RETICULARIS [None]
  - MUSCLE RIGIDITY [None]
  - OXYGEN SATURATION DECREASED [None]
  - PALLOR [None]
  - TACHYPNOEA [None]
